FAERS Safety Report 15630156 (Version 1)
Quarter: 2018Q4

REPORT INFORMATION
  Report Type: Spontaneous
  Country: US (occurrence: US)
  Receive Date: 20181112
  Receipt Date: 20181112
  Transmission Date: 20190205
  Serious: No
  Sender: FDA-Public Use
  Company Number: None

PATIENT
  Age: 60 Year
  Sex: Male

DRUGS (2)
  1. CEFTAROLINE [Suspect]
     Active Substance: CEFTAROLINE
     Indication: CELLULITIS STAPHYLOCOCCAL
     Dosage: ?          OTHER FREQUENCY:Q12H;?
     Route: 042
     Dates: start: 20181019
  2. CEFTAROLINE [Suspect]
     Active Substance: CEFTAROLINE
     Indication: BACTERAEMIA
     Dosage: ?          OTHER FREQUENCY:Q12H;?
     Route: 042
     Dates: start: 20181019

REACTIONS (3)
  - Rash pruritic [None]
  - Dyspnoea [None]
  - Rash maculo-papular [None]

NARRATIVE: CASE EVENT DATE: 20181021
